FAERS Safety Report 12721530 (Version 2)
Quarter: 2016Q4

REPORT INFORMATION
  Report Type: Spontaneous
  Country: DE (occurrence: DE)
  Receive Date: 20160907
  Receipt Date: 20161024
  Transmission Date: 20170207
  Serious: Yes (Other)
  Sender: FDA-Public Use
  Company Number: PHHY2016DE121212

PATIENT
  Sex: Male

DRUGS (1)
  1. EXTAVIA [Suspect]
     Active Substance: INTERFERON BETA-1B
     Indication: PRODUCT USED FOR UNKNOWN INDICATION
     Dosage: 250 UG/ML, QOD
     Route: 058
     Dates: start: 2000

REACTIONS (5)
  - Arteriosclerosis [Unknown]
  - Hypercholesterolaemia [Unknown]
  - Hypertensive heart disease [Unknown]
  - Hypertension [Unknown]
  - Microvascular coronary artery disease [Unknown]
